FAERS Safety Report 10515536 (Version 1)
Quarter: 2014Q4

REPORT INFORMATION
  Report Type: Spontaneous
  Country: RS (occurrence: RS)
  Receive Date: 20141014
  Receipt Date: 20141014
  Transmission Date: 20150528
  Serious: Yes (Other)
  Sender: FDA-Public Use
  Company Number: RS-TEVA-515096ISR

PATIENT
  Age: 60 Year
  Sex: Female
  Weight: 83 kg

DRUGS (6)
  1. DOXORUBICIN NOS [Suspect]
     Active Substance: DOXORUBICIN
     Indication: BREAST CANCER STAGE III
     Dosage: 60 MG/M2 ON DAY 1 EVERY 3 WEEKS FOR FOUR CYCLES
     Route: 065
  2. RIBAVIRIN. [Suspect]
     Active Substance: RIBAVIRIN
     Indication: HEPATITIS C
     Dosage: 1000 MILLIGRAM DAILY;
     Route: 065
  3. CYCLOPHOSPHAMIDE. [Suspect]
     Active Substance: CYCLOPHOSPHAMIDE
     Indication: BREAST CANCER STAGE III
     Dosage: 600 MG/M2 ON DAY 1 EVERY 3 WEEKS FOR FOUR CYCLES
     Route: 065
  4. TRASTUZUMAB [Suspect]
     Active Substance: TRASTUZUMAB
     Indication: BREAST CANCER STAGE III
     Dosage: LOADING DOSE 8 MG/KG, THEN 6 MG/KG EVERY 3 WEEKS FOR 4 CYCLES
     Route: 065
  5. INTERFERON ALFA-2A [Suspect]
     Active Substance: INTERFERON ALFA-2A
     Indication: HEPATITIS C
     Route: 065
  6. DOCETAXEL. [Suspect]
     Active Substance: DOCETAXEL
     Indication: BREAST CANCER STAGE III
     Dosage: 75 MG/M2 ON DAY 1 EVERY 3 WEEKS FOR 4 CYCLES
     Route: 065

REACTIONS (3)
  - Neutropenia [Recovered/Resolved]
  - Hepatotoxicity [Recovered/Resolved]
  - Hepatitis C [Recovered/Resolved]
